FAERS Safety Report 10449908 (Version 1)
Quarter: 2014Q3

REPORT INFORMATION
  Report Type: Spontaneous
  Country: JP (occurrence: None)
  Receive Date: 20140910
  Receipt Date: 20140910
  Transmission Date: 20150326
  Serious: Yes (Hospitalization)
  Sender: FDA-Public Use
  Company Number: FK201403614

PATIENT
  Age: 75 Year
  Sex: Female

DRUGS (4)
  1. PACLITAXEL (PACLITAXEL) (PACLITAXEL) [Suspect]
     Active Substance: PACLITAXEL
     Indication: OVARIAN CANCER RECURRENT
     Dates: start: 200502, end: 200601
  2. CARBOPLATIN (MANUFACTURER UNKNOWN) (CARBOPLATIN) (CARBOPLATIN) [Suspect]
     Active Substance: CARBOPLATIN
     Indication: OVARIAN CANCER RECURRENT
     Dates: start: 200502, end: 200601
  3. IRINOTECAN [Concomitant]
     Active Substance: IRINOTECAN
  4. CISPLATIN. [Concomitant]
     Active Substance: CISPLATIN

REACTIONS (2)
  - Acute myeloid leukaemia [None]
  - Myelodysplastic syndrome [None]
